FAERS Safety Report 8021937-0 (Version None)
Quarter: 2012Q1

REPORT INFORMATION
  Report Type: 
  Country: None (occurrence: None)
  Receive Date: 20120104
  Receipt Date: 20111230
  Transmission Date: 20120608
  Serious: Yes (Other)
  Sender: FDA-Public Use
  Company Number: US-ABBOTT-11P-163-0880832-00

PATIENT
  Sex: Female
  Weight: 136.2 kg

DRUGS (5)
  1. HUMIRA [Suspect]
     Indication: PSORIASIS
     Dates: start: 20080101, end: 20111130
  2. UNKNOWN MEDICATION [Concomitant]
     Indication: HYPERTENSION
  3. HUMIRA [Suspect]
     Dates: start: 20111130
  4. LISINOPRIL [Concomitant]
     Indication: HYPERTENSION
  5. VISTARIL CAP [Concomitant]
     Indication: PSORIASIS

REACTIONS (6)
  - DRUG INEFFECTIVE [None]
  - PRURITUS [None]
  - BLOOD GLUCOSE INCREASED [None]
  - PSORIASIS [None]
  - IMPAIRED HEALING [None]
  - SKIN HAEMORRHAGE [None]
